FAERS Safety Report 7299491-0 (Version None)
Quarter: 2011Q1

REPORT INFORMATION
  Report Type: 
  Country: None (occurrence: None)
  Receive Date: 20110217
  Receipt Date: 20110214
  Transmission Date: 20110831
  Serious: Yes (Hospitalization)
  Sender: FDA-Public Use
  Company Number: BR-ABBOTT-10P-020-0673120-00

PATIENT
  Sex: Female
  Weight: 68 kg

DRUGS (10)
  1. SIMVASTATIN [Concomitant]
     Indication: BLOOD CHOLESTEROL INCREASED
     Route: 048
  2. FOLIC ACID [Concomitant]
     Indication: VITAMIN SUPPLEMENTATION
     Route: 048
  3. HUMIRA [Suspect]
     Indication: RHEUMATOID ARTHRITIS
     Route: 058
  4. DICLOFENAC SODIUM [Concomitant]
     Indication: PAIN
     Dosage: 3 EVERY 24 HOURS AS NECESSARY
     Route: 048
     Dates: start: 20090101
  5. PREDNISONE TAB [Concomitant]
     Indication: STEROID THERAPY
     Route: 048
     Dates: start: 20090101
  6. METHOTREXATE [Concomitant]
     Indication: RHEUMATOID ARTHRITIS
     Route: 048
  7. CALCIUM BICARBONATE [Concomitant]
     Indication: BONE DISORDER
     Route: 048
  8. TOPAMAX [Concomitant]
     Indication: DEPRESSION
     Route: 048
  9. RIVOTRIL [Concomitant]
     Indication: NERVOUS SYSTEM DISORDER
     Route: 048
  10. OMEPRAZOLE [Concomitant]
     Indication: GASTRIC DISORDER
     Route: 048

REACTIONS (5)
  - DECREASED APPETITE [None]
  - HYPERTENSION [None]
  - WEIGHT DECREASED [None]
  - DEPRESSION [None]
  - EATING DISORDER [None]
